FAERS Safety Report 9325652 (Version 2)
Quarter: 2013Q4

REPORT INFORMATION
  Report Type: Spontaneous
  Country: GB (occurrence: GB)
  Receive Date: 20130604
  Receipt Date: 20131025
  Transmission Date: 20140711
  Serious: Yes (Other)
  Sender: FDA-Public Use
  Company Number: GB-TEVA-407992ISR

PATIENT
  Age: 79 Year
  Sex: Female

DRUGS (15)
  1. LANSOPRAZOLE [Suspect]
     Dosage: 30 MILLIGRAM DAILY;
     Route: 048
     Dates: start: 201209, end: 20130410
  2. CLOPIDOGREL [Concomitant]
  3. SALBUTAMOL [Concomitant]
  4. LISINOPRIL [Concomitant]
  5. BENDROFLUMETHIAZIDE [Concomitant]
  6. EZETIMIBE [Concomitant]
  7. TIOTROPIUM [Concomitant]
  8. CARBOCYSTEINE [Concomitant]
  9. FERROUS SULPHATE [Concomitant]
  10. SALMETEROL AND FLUTICASONE [Concomitant]
  11. CO-CODAMOL [Concomitant]
  12. GLYCERYL TRINITRATE [Concomitant]
  13. CITALOPRAM [Concomitant]
  14. ADIZEM-XL [Concomitant]
  15. MACROGOL [Concomitant]

REACTIONS (2)
  - Subacute cutaneous lupus erythematosus [Recovering/Resolving]
  - Rash generalised [Recovering/Resolving]
